FAERS Safety Report 24685461 (Version 1)
Quarter: 2024Q4

REPORT INFORMATION
  Report Type: Spontaneous
  Country: AU (occurrence: AU)
  Receive Date: 20241202
  Receipt Date: 20241202
  Transmission Date: 20250115
  Serious: Yes (Death, Other)
  Sender: PFIZER
  Company Number: AU-PFIZER INC-202400311543

PATIENT
  Age: 72 Year
  Sex: Male

DRUGS (2)
  1. PIPERACILLIN SODIUM\TAZOBACTAM SODIUM [Suspect]
     Active Substance: PIPERACILLIN SODIUM\TAZOBACTAM SODIUM
     Indication: Bacteraemia
     Dosage: 24.5 G/24 HOURS (INFUSION)
     Route: 042
  2. RIFAMPIN [Suspect]
     Active Substance: RIFAMPIN
     Indication: Bacteraemia
     Dosage: 300 MG, 2X/DAY
     Route: 048

REACTIONS (1)
  - Drug ineffective [Fatal]
